FAERS Safety Report 17608264 (Version 2)
Quarter: 2020Q3

REPORT INFORMATION
  Report Type: Spontaneous
  Country: US (occurrence: US)
  Receive Date: 20200401
  Receipt Date: 20200922
  Transmission Date: 20201102
  Serious: No
  Sender: FDA-Public Use
  Company Number: US-GLAXOSMITHKLINE-US2020AMR051892

PATIENT
  Sex: Female

DRUGS (7)
  1. PREDNISONE. [Suspect]
     Active Substance: PREDNISONE
     Indication: EAR CONGESTION
     Dosage: UNK
     Route: 065
     Dates: start: 202008
  2. ANORO ELLIPTA [Suspect]
     Active Substance: UMECLIDINIUM BROMIDE\VILANTEROL TRIFENATATE
     Indication: PRODUCT USED FOR UNKNOWN INDICATION
     Dosage: 1 PUFF(S), QD
     Route: 065
     Dates: start: 202001, end: 202007
  3. BREO ELLIPTA [Suspect]
     Active Substance: FLUTICASONE FUROATE\VILANTEROL TRIFENATATE
     Indication: PRODUCT USED FOR UNKNOWN INDICATION
     Dosage: 1 PUFF(S), QD
     Route: 065
     Dates: start: 2020
  4. FLONASE [Suspect]
     Active Substance: FLUTICASONE PROPIONATE
     Indication: EAR CONGESTION
     Dosage: UNK
     Route: 065
  5. ZYRTEC [Suspect]
     Active Substance: CETIRIZINE HYDROCHLORIDE
     Indication: EAR CONGESTION
     Dosage: UNK
     Route: 065
  6. ALLEGRA [Suspect]
     Active Substance: FEXOFENADINE HYDROCHLORIDE
     Indication: EAR CONGESTION
     Dosage: UNK
     Route: 065
  7. ALBUTEROL SULFATE. [Suspect]
     Active Substance: ALBUTEROL SULFATE
     Indication: PRODUCT USED FOR UNKNOWN INDICATION
     Dosage: UNK PRN
     Route: 065

REACTIONS (13)
  - Productive cough [Unknown]
  - Hypoacusis [Unknown]
  - Headache [Recovered/Resolved]
  - Ear congestion [Not Recovered/Not Resolved]
  - Rhinorrhoea [Unknown]
  - Back pain [Unknown]
  - Bladder pain [Recovered/Resolved]
  - Drug ineffective [Unknown]
  - Pain in extremity [Unknown]
  - Chronic obstructive pulmonary disease [Unknown]
  - Hypertension [Unknown]
  - Bladder discomfort [Recovered/Resolved]
  - Pollakiuria [Not Recovered/Not Resolved]

NARRATIVE: CASE EVENT DATE: 2020
